FAERS Safety Report 5155135-5 (Version None)
Quarter: 2006Q4

REPORT INFORMATION
  Report Type: 
  Country: None (occurrence: None)
  Receive Date: 20061121
  Receipt Date: 20061107
  Transmission Date: 20070319
  Serious: Yes (Hospitalization)
  Sender: FDA-Public Use
  Company Number: US-ELI_LILLY_AND_COMPANY-US200611001397

PATIENT
  Sex: Female

DRUGS (4)
  1. FORTEO [Suspect]
     Indication: OSTEOPENIA
     Dosage: UNK, UNK
     Dates: start: 20060201
  2. LASIX [Concomitant]
  3. MOBIC [Concomitant]
  4. ACIPHEX [Concomitant]

REACTIONS (2)
  - OVARIAN CANCER [None]
  - PHARMACEUTICAL PRODUCT COMPLAINT [None]
